FAERS Safety Report 8175875-3 (Version None)
Quarter: 2012Q1

REPORT INFORMATION
  Report Type: 
  Country: None (occurrence: None)
  Receive Date: 20120301
  Receipt Date: 20120222
  Transmission Date: 20120608
  Serious: Yes (Death, Hospitalization)
  Sender: FDA-Public Use
  Company Number: IT-CELGENEUS-083-21880-11110780

PATIENT
  Sex: Male

DRUGS (2)
  1. REVLIMID [Suspect]
     Indication: MULTIPLE MYELOMA
     Dosage: 15 MILLIGRAM
     Route: 048
     Dates: start: 20110705, end: 20110716
  2. DEXAMETHASONE [Concomitant]
     Route: 065
     Dates: start: 20110706, end: 20110709

REACTIONS (2)
  - DEATH [None]
  - CARDIAC FAILURE [None]
